FAERS Safety Report 6263709-3 (Version None)
Quarter: 2009Q3

REPORT INFORMATION
  Report Type: 
  Country: None (occurrence: None)
  Receive Date: 20090710
  Receipt Date: 20090707
  Transmission Date: 20100115
  Serious: Yes (Death)
  Sender: FDA-Public Use
  Company Number: US-AMGEN-US354799

PATIENT
  Sex: Female

DRUGS (4)
  1. NPLATE [Suspect]
     Indication: IDIOPATHIC THROMBOCYTOPENIC PURPURA
     Route: 058
     Dates: start: 20090617, end: 20090617
  2. CORTICOSTEROIDS [Concomitant]
     Route: 065
     Dates: start: 20090529
  3. IMMUNOGLOBULINS [Concomitant]
     Route: 042
     Dates: start: 20090529
  4. RITUXIMAB [Concomitant]
     Route: 065
     Dates: start: 20090612

REACTIONS (1)
  - DEATH [None]
